FAERS Safety Report 23705182 (Version 1)
Quarter: 2024Q2

REPORT INFORMATION
  Report Type: Other
  Country: DE (occurrence: None)
  Receive Date: 20240404
  Receipt Date: 20240404
  Transmission Date: 20240716
  Serious: Yes (Hospitalization)
  Sender: FDA-Public Use
  Company Number: DE-ROCHE-3535135

PATIENT
  Age: 39 Year
  Sex: Female
  Weight: 94 kg

DRUGS (2)
  1. OCRELIZUMAB [Suspect]
     Active Substance: OCRELIZUMAB
     Indication: Relapsing-remitting multiple sclerosis
     Route: 065
     Dates: start: 20220221
  2. LEVOTHYROXINE [Concomitant]
     Active Substance: LEVOTHYROXINE\LEVOTHYROXINE SODIUM
     Dosage: THERAPY ONGOING

REACTIONS (1)
  - Giant cell tumour of tendon sheath [Not Recovered/Not Resolved]

NARRATIVE: CASE EVENT DATE: 20230915
